FAERS Safety Report 4580740-4 (Version None)
Quarter: 2005Q1

REPORT INFORMATION
  Report Type: 
  Country: None (occurrence: None)
  Receive Date: 20050214
  Receipt Date: 20040521
  Transmission Date: 20050727
  Serious: No
  Sender: FDA-Public Use
  Company Number: US-GLAXOSMITHKLINE-A0511870A

PATIENT
  Age: 16 Year
  Sex: Male

DRUGS (2)
  1. LAMICTAL [Suspect]
     Dosage: 200MG TWICE PER DAY
     Route: 048
     Dates: start: 20040301
  2. TRILEPTAL [Concomitant]
     Route: 065

REACTIONS (3)
  - BALANCE DISORDER [None]
  - DIPLOPIA [None]
  - EYE ROLLING [None]
